FAERS Safety Report 5454157-4 (Version None)
Quarter: 2007Q3

REPORT INFORMATION
  Report Type: 
  Country: None (occurrence: None)
  Receive Date: 20070917
  Receipt Date: 20070228
  Transmission Date: 20080115
  Serious: Yes (Hospitalization)
  Sender: FDA-Public Use
  Company Number: US-ASTRAZENECA-2006UW11265

PATIENT
  Age: 478 Month
  Sex: Female
  Weight: 105.9 kg

DRUGS (3)
  1. SEROQUEL [Suspect]
     Indication: INSOMNIA
     Dosage: 200 TO 300 MG
     Route: 048
     Dates: start: 20020101
  2. CLOZAPINE [Suspect]
  3. MIRTAZAPINE [Suspect]

REACTIONS (1)
  - DIABETES MELLITUS [None]
